FAERS Safety Report 18679470 (Version 1)
Quarter: 2020Q4

REPORT INFORMATION
  Report Type: Spontaneous
  Country: FR (occurrence: FR)
  Receive Date: 20201230
  Receipt Date: 20201230
  Transmission Date: 20210114
  Serious: Yes (Hospitalization, Other)
  Sender: FDA-Public Use
  Company Number: FR-ACCORD-212554

PATIENT
  Age: 17 Year
  Sex: Male

DRUGS (6)
  1. 3/4-METHYLENEDIOXY-N-METHYLAMPHETAMINE [Suspect]
     Active Substance: MIDOMAFETAMINE
     Route: 065
  2. PREGABALIN. [Suspect]
     Active Substance: PREGABALIN
     Route: 048
  3. CLONAZEPAM. [Suspect]
     Active Substance: CLONAZEPAM
     Route: 048
  4. CANNABIS SATIVA [Suspect]
     Active Substance: CANNABIS SATIVA FLOWERING TOP
     Route: 055
  5. HYDROXYZINE [Suspect]
     Active Substance: HYDROXYZINE HYDROCHLORIDE
     Route: 065
  6. METHADONE [Suspect]
     Active Substance: METHADONE HYDROCHLORIDE
     Route: 048

REACTIONS (6)
  - Miosis [Recovered/Resolved]
  - Bradycardia [Recovered/Resolved]
  - Drug dependence [Recovered/Resolved]
  - Drug abuse [Unknown]
  - Somnolence [Recovered/Resolved]
  - Intentional product misuse [Unknown]

NARRATIVE: CASE EVENT DATE: 202011
